FAERS Safety Report 13744220 (Version 1)
Quarter: 2017Q3

REPORT INFORMATION
  Report Type: Spontaneous
  Country: BE (occurrence: BE)
  Receive Date: 20170712
  Receipt Date: 20170712
  Transmission Date: 20171127
  Serious: Yes (Hospitalization)
  Sender: FDA-Public Use
  Company Number: BE-ROCHE-1959531

PATIENT
  Sex: Female

DRUGS (3)
  1. NEORAL [Concomitant]
     Active Substance: CYCLOSPORINE
  2. CELLCEPT [Suspect]
     Active Substance: MYCOPHENOLATE MOFETIL\MYCOPHENOLATE MOFETIL HYDROCHLORIDE
     Indication: NEPHROTIC SYNDROME
     Route: 065
     Dates: start: 2011, end: 2012
  3. ADVAGRAF [Concomitant]
     Active Substance: TACROLIMUS

REACTIONS (5)
  - Intentional product use issue [Unknown]
  - Nephrotic syndrome [Unknown]
  - Weight increased [Unknown]
  - Off label use [Unknown]
  - Cushing^s syndrome [Unknown]

NARRATIVE: CASE EVENT DATE: 2011
